FAERS Safety Report 7000593-4 (Version None)
Quarter: 2010Q3

REPORT INFORMATION
  Report Type: 
  Country: None (occurrence: None)
  Receive Date: 20100920
  Receipt Date: 20100517
  Transmission Date: 20110219
  Serious: No
  Sender: FDA-Public Use
  Company Number: US-ASTRAZENECA-2010SE06829

PATIENT
  Age: 62 Year
  Sex: Female
  Weight: 96.2 kg

DRUGS (3)
  1. SEROQUEL XR [Suspect]
     Indication: ANXIETY
     Route: 048
  2. SEROQUEL XR [Suspect]
     Indication: DEPRESSION
     Route: 048
  3. LUVOX [Concomitant]
     Route: 048

REACTIONS (3)
  - DEPRESSION [None]
  - MOOD SWINGS [None]
  - WEIGHT INCREASED [None]
